FAERS Safety Report 8376623-4 (Version None)
Quarter: 2012Q2

REPORT INFORMATION
  Report Type: 
  Country: None (occurrence: None)
  Receive Date: 20120518
  Receipt Date: 20120504
  Transmission Date: 20120825
  Serious: Yes (Other)
  Sender: FDA-Public Use
  Company Number: 2012MA006141

PATIENT
  Age: 24 Year
  Sex: Female

DRUGS (1)
  1. OXYCODONE HCL [Suspect]
     Dosage: 20 MG;BID;PO
     Route: 048
     Dates: start: 20120423, end: 20120427

REACTIONS (1)
  - PREGNANCY TEST FALSE POSITIVE [None]
